FAERS Safety Report 18359776 (Version 2)
Quarter: 2022Q3

REPORT INFORMATION
  Report Type: Spontaneous
  Country: JP (occurrence: JP)
  Receive Date: 20201008
  Receipt Date: 20220714
  Transmission Date: 20221027
  Serious: Yes (Death, Hospitalization, Other)
  Sender: FDA-Public Use
  Company Number: JP-GLAXOSMITHKLINE-JP2020JPN200041

PATIENT

DRUGS (4)
  1. BENLYSTA [Suspect]
     Active Substance: BELIMUMAB
     Indication: Lupus enteritis
     Dosage: UNK
     Route: 058
     Dates: start: 20200427, end: 20200525
  2. BENLYSTA [Suspect]
     Active Substance: BELIMUMAB
     Indication: Lupus pancreatitis
  3. CELLCEPT [Suspect]
     Active Substance: MYCOPHENOLATE MOFETIL
     Indication: Lupus enteritis
     Dosage: UNK
  4. CELLCEPT [Suspect]
     Active Substance: MYCOPHENOLATE MOFETIL
     Indication: Lupus pancreatitis

REACTIONS (5)
  - Disseminated intravascular coagulation [Fatal]
  - Lupus enteritis [Unknown]
  - Lupus pancreatitis [Unknown]
  - Condition aggravated [Unknown]
  - Product use in unapproved indication [Unknown]

NARRATIVE: CASE EVENT DATE: 20200427
